FAERS Safety Report 9249718 (Version 2)
Quarter: 2013Q3

REPORT INFORMATION
  Report Type: Spontaneous
  Country: IT (occurrence: IT)
  Receive Date: 20130423
  Receipt Date: 20130703
  Transmission Date: 20140515
  Serious: Yes (Other)
  Sender: FDA-Public Use
  Company Number: IT-PFIZER INC-2013112520

PATIENT
  Age: 27 Year
  Sex: Female

DRUGS (3)
  1. TROZOCINA [Suspect]
     Indication: RESPIRATORY TRACT INFECTION
     Dosage: 1 UNIT DOSE
     Route: 048
     Dates: start: 20130103, end: 20130105
  2. TROZOCINA [Suspect]
     Indication: BRONCHITIS
  3. KEPPRA [Concomitant]

REACTIONS (1)
  - Dysentery [Recovered/Resolved]
